FAERS Safety Report 10565557 (Version 2)
Quarter: 2014Q4

REPORT INFORMATION
  Report Type: Spontaneous
  Country: US (occurrence: None)
  Receive Date: 20141103
  Receipt Date: 20141117
  Transmission Date: 20150529
  Serious: Yes (Hospitalization)
  Sender: FDA-Public Use
  Company Number: 2014-US-013982

PATIENT
  Age: 75 Year
  Sex: Female
  Weight: 64.9 kg

DRUGS (7)
  1. SPIRONOLACTONE. [Concomitant]
     Active Substance: SPIRONOLACTONE
  2. HYDROCHLOROTHIAZIDE. [Concomitant]
     Active Substance: HYDROCHLOROTHIAZIDE
  3. ENALAPRIL(ENALAPRIL MALEATE) [Concomitant]
  4. HYDROCODONE(HYDROCODONE) [Concomitant]
  5. VERAPAMIL [Concomitant]
     Active Substance: VERAPAMIL HYDROCHLORIDE
  6. XYREM [Suspect]
     Active Substance: SODIUM OXYBATE
     Indication: SLEEP DISORDER
     Route: 048
     Dates: start: 200809
  7. DULOXETINE [Concomitant]
     Active Substance: DULOXETINE

REACTIONS (6)
  - Somnambulism [None]
  - Haemorrhage [None]
  - Bacterial infection [None]
  - Off label use [None]
  - Dehydration [None]
  - Colitis [None]

NARRATIVE: CASE EVENT DATE: 201409
